FAERS Safety Report 6275914-0 (Version None)
Quarter: 2009Q3

REPORT INFORMATION
  Report Type: 
  Country: None (occurrence: None)
  Receive Date: 20090720
  Receipt Date: 20090709
  Transmission Date: 20100115
  Serious: Yes (Hospitalization)
  Sender: FDA-Public Use
  Company Number: 8048832

PATIENT

DRUGS (1)
  1. CIMZIA [Suspect]

REACTIONS (1)
  - SURGERY [None]
